FAERS Safety Report 22117588 (Version 1)
Quarter: 2023Q1

REPORT INFORMATION
  Report Type: Spontaneous
  Country: US (occurrence: US)
  Receive Date: 20230321
  Receipt Date: 20230321
  Transmission Date: 20230417
  Serious: Yes (Death, Hospitalization, Other)
  Sender: FDA-Public Use
  Company Number: US-AMGEN-USASP2023038157

PATIENT
  Age: 73 Year
  Sex: Female
  Weight: 56.689 kg

DRUGS (25)
  1. PROLIA [Suspect]
     Active Substance: DENOSUMAB
     Indication: Product used for unknown indication
     Dosage: UNK
     Route: 065
  2. AMANTADINE [Concomitant]
     Active Substance: AMANTADINE
  3. CARBIDOPA LEVODOPA [Concomitant]
     Active Substance: CARBIDOPA\LEVODOPA
  4. VITAMIN D3 [Concomitant]
     Active Substance: CHOLECALCIFEROL
  5. METHIMAZOLE [Concomitant]
     Active Substance: METHIMAZOLE
     Dosage: 5 MILLIGRAM
  6. PRAMIPEXOLE [Concomitant]
     Active Substance: PRAMIPEXOLE
  7. SODIUM BICARBONATE [Concomitant]
     Active Substance: SODIUM BICARBONATE
  8. VITAMIN C [Concomitant]
     Active Substance: ASCORBIC ACID
  9. COVID-19 vaccine [Concomitant]
     Dosage: UNK
     Dates: start: 20210409
  10. METOPROLOL [Concomitant]
     Active Substance: METOPROLOL
  11. ERYTHROPOIETIN [Concomitant]
     Active Substance: ERYTHROPOIETIN
  12. NYSTATIN [Concomitant]
     Active Substance: NYSTATIN
  13. ALPRAZOLAM [Concomitant]
     Active Substance: ALPRAZOLAM
     Dosage: 0.25 MILLIGRAM
  14. AMOXICILLIN [Concomitant]
     Active Substance: AMOXICILLIN
  15. AMPICILLIN [Concomitant]
     Active Substance: AMPICILLIN
  16. ASCORBIC ACID [Concomitant]
     Active Substance: ASCORBIC ACID
  17. ASPIRIN [Concomitant]
     Active Substance: ASPIRIN
  18. CYANOCOBALAMIN [Concomitant]
     Active Substance: CYANOCOBALAMIN
  19. FERROUS SULFATE [Concomitant]
     Active Substance: FERROUS SULFATE
  20. FOSFOMYCIN [Concomitant]
     Active Substance: FOSFOMYCIN
  21. KETOCONAZOLE [Concomitant]
     Active Substance: KETOCONAZOLE
  22. MUPIROCIN [Concomitant]
     Active Substance: MUPIROCIN
  23. PANTOPRAZOLE [Concomitant]
     Active Substance: PANTOPRAZOLE
  24. TRAMADOL [Concomitant]
     Active Substance: TRAMADOL
  25. TRIAMCINOLONE [Concomitant]
     Active Substance: TRIAMCINOLONE

REACTIONS (39)
  - Parkinson^s disease [Fatal]
  - Pneumonia aspiration [Fatal]
  - Sepsis [Unknown]
  - Wound infection staphylococcal [Unknown]
  - Arrhythmia [Unknown]
  - Chronic kidney disease [Unknown]
  - Osteomyelitis [Unknown]
  - Respiratory failure [Unknown]
  - Hip fracture [Unknown]
  - Renal failure [Unknown]
  - Arteriosclerosis coronary artery [Unknown]
  - Faeces discoloured [Unknown]
  - Wound necrosis [Unknown]
  - Drug hypersensitivity [Unknown]
  - Osteoarthritis [Unknown]
  - Greater trochanteric pain syndrome [Unknown]
  - Swelling face [Unknown]
  - Swollen tongue [Unknown]
  - Spinal osteoarthritis [Unknown]
  - Mental status changes [Unknown]
  - Muscular weakness [Unknown]
  - Groin pain [Unknown]
  - Dysstasia [Unknown]
  - Visual impairment [Unknown]
  - Ventricular extrasystoles [Unknown]
  - Lung disorder [Unknown]
  - Scoliosis [Unknown]
  - Sleep disorder [Unknown]
  - Asthma [Unknown]
  - Kyphosis [Unknown]
  - Dysphagia [Unknown]
  - Depression [Unknown]
  - Anxiety [Unknown]
  - Oral candidiasis [Unknown]
  - Decubitus ulcer [Unknown]
  - Coordination abnormal [Unknown]
  - Pulmonary mass [Unknown]
  - Emphysema [Unknown]
  - Cardiomegaly [Unknown]

NARRATIVE: CASE EVENT DATE: 20130101
